FAERS Safety Report 9467515 (Version 1)
Quarter: 2013Q3

REPORT INFORMATION
  Report Type: Spontaneous
  Country: US (occurrence: None)
  Receive Date: 20130819
  Receipt Date: 20130819
  Transmission Date: 20140515
  Serious: No
  Sender: FDA-Public Use
  Company Number: None

PATIENT
  Age: 56 Year
  Sex: Female

DRUGS (1)
  1. HUMIRA [Suspect]
     Dosage: 40MG QOW  SQ
     Route: 058
     Dates: start: 20130306, end: 20130530

REACTIONS (2)
  - Psoriasis [None]
  - Condition aggravated [None]
